FAERS Safety Report 6802693-8 (Version None)
Quarter: 2010Q2

REPORT INFORMATION
  Report Type: 
  Country: None (occurrence: None)
  Receive Date: 20100628
  Receipt Date: 20100301
  Transmission Date: 20101027
  Serious: Yes (Other)
  Sender: FDA-Public Use
  Company Number: US-ASTRAZENECA-2009UW20595

PATIENT
  Age: 24640 Day
  Sex: Male

DRUGS (4)
  1. SEROQUEL [Suspect]
     Indication: AGITATION
     Dosage: 25 TO 150 MG
     Route: 048
     Dates: start: 20050920, end: 20060517
  2. PAXIL [Concomitant]
     Dosage: 50 TO 80 MG
     Route: 048
     Dates: start: 20050920
  3. GABAPENTIN [Concomitant]
     Route: 048
     Dates: start: 20050920
  4. ATENOLOL [Concomitant]
     Route: 048
     Dates: start: 20050920

REACTIONS (4)
  - KETOACIDOSIS [None]
  - NEUROPATHY PERIPHERAL [None]
  - PANCREATITIS [None]
  - TYPE 2 DIABETES MELLITUS [None]
